FAERS Safety Report 13634489 (Version 1)
Quarter: 2017Q2

REPORT INFORMATION
  Report Type: Spontaneous
  Country: US (occurrence: US)
  Receive Date: 20170531
  Receipt Date: 20170531
  Transmission Date: 20170830
  Serious: No
  Sender: FDA-Public Use
  Company Number: US-ASTELLAS-1632904

PATIENT
  Sex: Female

DRUGS (3)
  1. TARCEVA [Suspect]
     Active Substance: ERLOTINIB HYDROCHLORIDE
     Indication: ORCHIDECTOMY
  2. NORCO [Concomitant]
     Active Substance: ACETAMINOPHEN\HYDROCODONE BITARTRATE
  3. TARCEVA [Suspect]
     Active Substance: ERLOTINIB HYDROCHLORIDE
     Indication: LUNG NEOPLASM MALIGNANT
     Route: 048
     Dates: start: 20150723

REACTIONS (9)
  - Ocular hyperaemia [Unknown]
  - Nasal congestion [Unknown]
  - Acne [Unknown]
  - Feeling cold [Unknown]
  - Eye irritation [Unknown]
  - Eye pruritus [Unknown]
  - Dry eye [Unknown]
  - Influenza [Unknown]
  - Pain [Unknown]
